FAERS Safety Report 10551170 (Version 1)
Quarter: 2014Q4

REPORT INFORMATION
  Report Type: Spontaneous
  Country: US (occurrence: None)
  Receive Date: 20141028
  Receipt Date: 20141028
  Transmission Date: 20150529
  Serious: Yes (Life-Threatening, Disabling)
  Sender: FDA-Public Use
  Company Number: None

PATIENT
  Age: 86 Year
  Sex: Female
  Weight: 61 kg

DRUGS (1)
  1. LYRICA [Suspect]
     Active Substance: PREGABALIN
     Indication: DIABETIC NEUROPATHY
     Dosage: 25   ONCE DAILY  TAKEN BY MOUTH
     Route: 048
     Dates: start: 20141025, end: 20141026

REACTIONS (3)
  - Incontinence [None]
  - Speech disorder [None]
  - Dizziness [None]

NARRATIVE: CASE EVENT DATE: 20141027
